FAERS Safety Report 10590271 (Version 1)
Quarter: 2014Q4

REPORT INFORMATION
  Report Type: Spontaneous
  Country: AU (occurrence: AU)
  Receive Date: 20141118
  Receipt Date: 20141118
  Transmission Date: 20150529
  Serious: Yes (Death, Hospitalization, Other)
  Sender: FDA-Public Use
  Company Number: AU-WATSON-2014-24427

PATIENT
  Age: 60 Year
  Sex: Male

DRUGS (4)
  1. HALOPERIDOL (UNKNOWN) [Suspect]
     Active Substance: HALOPERIDOL
     Dosage: 40 MG, DAILY
     Route: 065
  2. HALOPERIDOL (UNKNOWN) [Suspect]
     Active Substance: HALOPERIDOL
     Indication: AGGRESSION
     Dosage: 60 MG, DAILY
     Route: 065
  3. HALOPERIDOL (UNKNOWN) [Suspect]
     Active Substance: HALOPERIDOL
     Dosage: 80 MG, QOD
     Route: 065
  4. HALOPERIDOL (UNKNOWN) [Suspect]
     Active Substance: HALOPERIDOL
     Dosage: 30 MG, DAILY
     Route: 065

REACTIONS (2)
  - Sedation [Fatal]
  - Extrapyramidal disorder [Fatal]
